FAERS Safety Report 9287064 (Version 1)
Quarter: 2013Q2

REPORT INFORMATION
  Report Type: Spontaneous
  Country: NL (occurrence: NL)
  Receive Date: 20130513
  Receipt Date: 20130513
  Transmission Date: 20140414
  Serious: Yes (Other)
  Sender: FDA-Public Use
  Company Number: NL-TEVA-402593ISR

PATIENT
  Age: 85 Year
  Sex: Female

DRUGS (16)
  1. AMOXICILLINE INFUSIEPOEDER 2000MG [Suspect]
     Indication: MENINGITIS BACTERIAL
     Dosage: 12000 MILLIGRAM DAILY; 6 DD 2000 MG
     Route: 042
     Dates: start: 20121111, end: 20121114
  2. PYRIDOXINE TABLET  20MG [Concomitant]
     Dosage: 20 MILLIGRAM DAILY; 1 DD 1
     Route: 048
  3. ISONIAZIDE INJVLST 100MG/ML [Concomitant]
     Dosage: 265 MILLIGRAM DAILY; 1 DD 265 MG
     Route: 042
  4. RIFAMPICINE DRAGEE 450MG [Concomitant]
     Dosage: 450 MILLIGRAM DAILY; 1 DD 1
     Route: 048
  5. PYRAZINAMIDE [Concomitant]
     Dosage: 1325 MILLIGRAM DAILY; 1 DD 1325 MG
     Route: 065
  6. ETHAMBUTOL INJVLST 100MG/ML [Concomitant]
     Dosage: 795 MILLIGRAM DAILY; 1 DD 795
     Route: 042
  7. ACICLOVIR INFUSIEPOEDER 500MG [Concomitant]
     Dosage: 1500 MILLIGRAM DAILY; 3 DD 1
     Route: 042
  8. KEPPRA TABLET FILMOMHULD  500MG [Concomitant]
     Dosage: 1000 MILLIGRAM DAILY; 2 DD 1
     Route: 048
  9. CEFTAZIDIM INFUSIEPOEDER 2000MG [Concomitant]
     Dosage: 4000 MILLIGRAM DAILY; 2 DD 1
     Route: 042
  10. METOCLOPRAMIDE ZETPIL 20MG [Concomitant]
     Dosage: 60 MILLIGRAM DAILY; 3 DD 1
     Route: 054
  11. TUBERCULINE INJVLST 10IE/ML [Concomitant]
     Dosage: 1 MILLIGRAM DAILY; 1 DD 1
     Route: 042
  12. FRAXIPARINE INJVLST 9500IE/ML WWSP 0,3ML [Concomitant]
     Route: 058
  13. DIPHANTOINE TABLET 100MG - NON-CURRENT DRUG [Concomitant]
     Dosage: 300 MILLIGRAM DAILY; 2 DD 150 MG
     Route: 048
  14. CLONAZEPAM TABLET 0,5MG [Concomitant]
     Dosage: ZN  1 MG
     Route: 048
  15. PARACETAMOL TABLET 1000MG [Concomitant]
     Dosage: 4000 MILLIGRAM DAILY; 4 TIMES DAILY WHEN NEEDED
     Route: 048
  16. DEXAMETHASON CAPSULE 20MG [Concomitant]
     Dosage: 20 MILLIGRAM DAILY; 1 DD 1
     Route: 048

REACTIONS (2)
  - Renal failure acute [Recovered/Resolved]
  - Anuria [Recovered/Resolved]
